FAERS Safety Report 18844600 (Version 2)
Quarter: 2021Q1

REPORT INFORMATION
  Report Type: Report from Study
  Country: AU (occurrence: AU)
  Receive Date: 20210204
  Receipt Date: 20210205
  Transmission Date: 20210419
  Serious: Yes (Hospitalization)
  Sender: FDA-Public Use
  Company Number: AU-GLAXOSMITHKLINE-AU2021019873

PATIENT
  Age: 67 Year
  Sex: Male

DRUGS (3)
  1. BELANTAMAB MAFODOTIN. [Suspect]
     Active Substance: BELANTAMAB MAFODOTIN
     Indication: PLASMA CELL MYELOMA
     Dosage: 255 ML, CYC
     Route: 042
     Dates: start: 20201020
  2. DEXAMETHASONE NON GSK [Suspect]
     Active Substance: DEXAMETHASONE
     Indication: PLASMA CELL MYELOMA
     Dosage: 20 MG
     Dates: start: 20201020
  3. BORTEZOMIB. [Suspect]
     Active Substance: BORTEZOMIB
     Indication: PLASMA CELL MYELOMA
     Dosage: 3 MG, CYC
     Route: 058
     Dates: start: 20201020

REACTIONS (1)
  - Orthostatic hypotension [Recovered/Resolved]

NARRATIVE: CASE EVENT DATE: 20210122
